FAERS Safety Report 6964566-X (Version None)
Quarter: 2010Q3

REPORT INFORMATION
  Report Type: 
  Country: None (occurrence: None)
  Receive Date: 20100903
  Receipt Date: 20100819
  Transmission Date: 20110219
  Serious: Yes (Hospitalization)
  Sender: FDA-Public Use
  Company Number: US-BAYER-201011966NA

PATIENT
  Age: 25 Year
  Sex: Female
  Weight: 68 kg

DRUGS (4)
  1. YASMIN [Suspect]
     Indication: CONTRACEPTION
     Route: 048
     Dates: start: 20061201, end: 20070213
  2. ADVIL LIQUI-GELS [Concomitant]
     Route: 065
  3. ALEVE (CAPLET) [Concomitant]
     Route: 065
  4. NAPROXEN [Concomitant]
     Route: 065
     Dates: start: 20080601

REACTIONS (2)
  - DEEP VEIN THROMBOSIS [None]
  - PAIN IN EXTREMITY [None]
